FAERS Safety Report 5338054-0 (Version None)
Quarter: 2007Q2

REPORT INFORMATION
  Report Type: 
  Country: None (occurrence: None)
  Receive Date: 20070530
  Receipt Date: 20070521
  Transmission Date: 20071010
  Serious: Yes (Hospitalization)
  Sender: FDA-Public Use
  Company Number: PHEH2007US04134

PATIENT
  Age: 68 Year
  Sex: Male

DRUGS (2)
  1. ZELNORM [Suspect]
     Indication: BOWEL MOVEMENT IRREGULARITY
     Dosage: 6 MG, BID
     Dates: start: 20060101
  2. ZELNORM [Suspect]
     Dosage: 6 MG, BID

REACTIONS (5)
  - ABDOMINAL PAIN [None]
  - DIARRHOEA [None]
  - DRUG INEFFECTIVE [None]
  - INTERVERTEBRAL DISC PROTRUSION [None]
  - SURGERY [None]
